FAERS Safety Report 7804692-6 (Version None)
Quarter: 2011Q4

REPORT INFORMATION
  Report Type: 
  Country: None (occurrence: None)
  Receive Date: 20111010
  Receipt Date: 20110928
  Transmission Date: 20120403
  Serious: Yes (Hospitalization)
  Sender: FDA-Public Use
  Company Number: US-BAYER-201033957NA

PATIENT
  Age: 24 Year
  Sex: Female
  Weight: 82 kg

DRUGS (34)
  1. ALIMENTARY TRACT AND METABOLISM [Concomitant]
     Indication: ABDOMINAL PAIN UPPER
     Dosage: UNK
     Dates: start: 20090803
  2. ALIMENTARY TRACT AND METABOLISM [Concomitant]
     Indication: NAUSEA
  3. CHROMIUM PICOLINATE [Concomitant]
  4. COENZYME Q10 [Concomitant]
  5. ZOFRAN [Concomitant]
     Indication: DUODENITIS
  6. DONN-LIDOC-MYLANTA [Concomitant]
     Dosage: UNK
     Route: 048
     Dates: start: 20090721
  7. METHSCOPOLAMINE BROMIDE [Concomitant]
     Dosage: 5 MG, UNK
     Dates: start: 20090810
  8. PAMINE FORTE [Concomitant]
     Dosage: DAILY DOSE 5 MG
  9. IBUPROFEN [Concomitant]
  10. CLAFORAN [Concomitant]
     Dosage: UNK
     Dates: start: 20090708
  11. BACITRACIN [Concomitant]
     Dosage: UNK
     Dates: start: 20090708
  12. HYDROCODONE BITARTRATE AND ACETAMINOPHEN [Concomitant]
     Dosage: UNK
     Route: 048
     Dates: start: 20090623
  13. DROSPIRENONE AND ETHINYL ESTRADIOL [Suspect]
     Indication: CONTRACEPTION
  14. AUGMENTIN '125' [Concomitant]
     Dosage: 250 MG, UNK
     Route: 048
     Dates: start: 20090721
  15. YASMIN [Suspect]
     Indication: ACNE
     Dosage: UNK UNK, UNK
     Route: 048
     Dates: start: 20050301, end: 20091001
  16. ANTIBIOTICS [Concomitant]
     Indication: FURUNCLE
     Dosage: UNK
     Dates: start: 20090701, end: 20090701
  17. ALIMENTARY TRACT AND METABOLISM [Concomitant]
     Indication: VOMITING
  18. MOBIC [Concomitant]
  19. FLAGYL [Concomitant]
     Dosage: UNK
     Dates: start: 20090116
  20. ZOFRAN [Concomitant]
     Indication: GASTRITIS
     Dosage: UNK
     Dates: start: 20090701
  21. MELOXICAM [Concomitant]
     Dosage: 15 MG, UNK
     Route: 048
     Dates: start: 20090609
  22. CLOTRIM/BETMET D [Concomitant]
     Dosage: UNK
     Route: 061
     Dates: start: 20090708
  23. YAZ [Suspect]
     Indication: ACNE
     Dosage: UNK UNK, UNK
     Route: 048
     Dates: start: 20050301, end: 20091001
  24. YAZ [Suspect]
     Indication: CONTRACEPTION
  25. FUROSEMIDE [Concomitant]
     Dosage: UNK
     Dates: start: 20070101
  26. SULFAMETHOXAZOLE AND TRIMETHOPRIM [Concomitant]
     Dosage: UNK
     Route: 048
     Dates: start: 20090708
  27. CLINDAMYCIN [Concomitant]
     Dosage: 300 MG, UNK
     Route: 048
     Dates: start: 20090714
  28. ONDANSETRON [Concomitant]
     Dosage: 4 MG, UNK
     Route: 048
     Dates: start: 20090721
  29. TOPAMAX [Concomitant]
     Dosage: DAILY DOSE 25 MG
  30. NAPROXEN [Concomitant]
  31. PANTOPRAZOLE [Concomitant]
     Dosage: 40 MG, UNK
     Route: 048
     Dates: start: 20090714
  32. YASMIN [Suspect]
     Indication: CONTRACEPTION
  33. DROSPIRENONE AND ETHINYL ESTRADIOL [Suspect]
     Indication: ACNE
     Dosage: UNK UNK, UNK
     Route: 048
     Dates: start: 20050301, end: 20091001
  34. TOPIRAMATE [Concomitant]
     Dosage: 25 MG, UNK
     Route: 048
     Dates: start: 20090623

REACTIONS (10)
  - CHOLECYSTITIS CHRONIC [None]
  - CHOLELITHIASIS [None]
  - VOMITING [None]
  - ABDOMINAL PAIN UPPER [None]
  - PROCEDURAL PAIN [None]
  - NAUSEA [None]
  - BILE DUCT STONE [None]
  - ABDOMINAL PAIN [None]
  - DYSPEPSIA [None]
  - BILIARY COLIC [None]
